FAERS Safety Report 5217271-4 (Version None)
Quarter: 2007Q1

REPORT INFORMATION
  Report Type: 
  Country: None (occurrence: None)
  Receive Date: 20070124
  Receipt Date: 20060215
  Transmission Date: 20070707
  Serious: No
  Sender: FDA-Public Use
  Company Number: US-GLAXOSMITHKLINE-A0575062A

PATIENT
  Age: 50 Year
  Sex: Male

DRUGS (10)
  1. PAXIL CR [Suspect]
     Indication: DEPRESSION
     Dosage: 75MG PER DAY
     Route: 048
     Dates: start: 20050902, end: 20050904
  2. PAROXETINE HCL [Suspect]
     Dosage: 60MG PER DAY
     Route: 048
     Dates: start: 20050917
  3. XANAX [Concomitant]
  4. K-DUR 10 [Concomitant]
  5. PROTONIX [Concomitant]
  6. NEURONTIN [Concomitant]
  7. CARDURA [Concomitant]
  8. DETROL LA [Concomitant]
  9. PEPCID [Concomitant]
  10. MULTI-VITAMIN [Concomitant]

REACTIONS (11)
  - BACK INJURY [None]
  - CONTUSION [None]
  - DEPRESSED MOOD [None]
  - DIZZINESS [None]
  - DRUG INEFFECTIVE [None]
  - DRY MOUTH [None]
  - FALL [None]
  - SEDATION [None]
  - SKIN LACERATION [None]
  - SOMNOLENCE [None]
  - SWELLING [None]
